FAERS Safety Report 6479844-0 (Version None)
Quarter: 2009Q4

REPORT INFORMATION
  Report Type: 
  Country: None (occurrence: None)
  Receive Date: 20091208
  Receipt Date: 20091130
  Transmission Date: 20100525
  Serious: Yes (Hospitalization)
  Sender: FDA-Public Use
  Company Number: JP-ROCHE-668249

PATIENT
  Sex: Male
  Weight: 98 kg

DRUGS (4)
  1. TAMIFLU [Suspect]
     Indication: INFLUENZA
     Dosage: DOSE: 75 75
     Route: 048
     Dates: start: 20091029, end: 20091029
  2. LOXONIN [Suspect]
     Indication: PYREXIA
     Dosage: DOSE FORM: ORAL FORMULATION (NOT OTHERWISE SPECIFIED).
     Route: 048
     Dates: start: 20091029, end: 20091031
  3. FLOMOX [Suspect]
     Indication: PYREXIA
     Dosage: DOSE FORM: ORAL FORMULATION (NOT OTHERWISE SPECIFIED)
     Route: 048
     Dates: start: 20091030, end: 20091031
  4. SELBEX [Concomitant]
     Route: 048
     Dates: start: 20091029, end: 20091030

REACTIONS (2)
  - ALTERED STATE OF CONSCIOUSNESS [None]
  - MENINGITIS [None]
